FAERS Safety Report 18846255 (Version 2)
Quarter: 2021Q1

REPORT INFORMATION
  Report Type: Other
  Country: FR (occurrence: FR)
  Receive Date: 20210203
  Receipt Date: 20210205
  Transmission Date: 20210419
  Serious: Yes (Hospitalization)
  Sender: FDA-Public Use
  Company Number: FR-CELLTRION INC.-2021FR001046

PATIENT

DRUGS (11)
  1. CLOPIDOGREL (CHLORHYDRATE DE) [Concomitant]
     Active Substance: CLOPIDOGREL HYDROCHLORIDE
     Indication: CARDIOVASCULAR EVENT PROPHYLAXIS
     Dosage: 75 MG, DAILY
     Route: 048
     Dates: start: 201711
  2. LEVOTHYROX [Concomitant]
     Active Substance: LEVOTHYROXINE
     Indication: HYPOTHYROIDISM
     Dosage: 137.5 UG, DAILY
     Route: 048
     Dates: start: 2018
  3. RITUXIMAB (UNKNOWN) [Suspect]
     Active Substance: RITUXIMAB
     Indication: CRYOGLOBULINAEMIA
     Dosage: 1 G EVERY 15 DAYS
     Route: 042
     Dates: start: 20191120, end: 20191205
  4. LANSOPRAZOLE. [Concomitant]
     Active Substance: LANSOPRAZOLE
     Indication: PROPHYLAXIS
     Dosage: 15 MG, DAILY
     Route: 048
     Dates: start: 2018
  5. ATORVASTATINE [Concomitant]
     Active Substance: ATORVASTATIN
     Indication: DYSLIPIDAEMIA
     Dosage: 10 MG, DAILY
     Route: 048
  6. BENLYSTA [Interacting]
     Active Substance: BELIMUMAB
     Indication: CRYOGLOBULINAEMIA
     Dosage: 10 MG, MONTHLY
     Route: 042
     Dates: start: 20200717, end: 20200717
  7. RITUXIMAB (UNKNOWN) [Suspect]
     Active Substance: RITUXIMAB
     Indication: CRYOGLOBULINAEMIA
     Dosage: 375 MG/M2, TOTAL
     Route: 042
     Dates: start: 20200717, end: 20200717
  8. BISOPROLOL (FUMARATE ACIDE DE) [Concomitant]
     Active Substance: BISOPROLOL FUMARATE
     Indication: HYPERTENSION
     Dosage: 5 MG, DAILY (STOP DATE: 20?JUL?2020)
     Route: 048
  9. PREGABALINE [Concomitant]
     Active Substance: PREGABALIN
     Indication: NEUROPATHY PERIPHERAL
     Dosage: 450 MG, DAILY
     Route: 048
  10. BACTRIM [Concomitant]
     Active Substance: SULFAMETHOXAZOLE\TRIMETHOPRIM
     Indication: OPPORTUNISTIC INFECTION PROPHYLAXIS
     Dosage: 3 DF, 1/WEEK
     Route: 048
  11. SPIRONOLACTONE. [Concomitant]
     Active Substance: SPIRONOLACTONE
     Indication: HYPERTENSION
     Dosage: 12.5 MG, DAILY
     Route: 048

REACTIONS (6)
  - Asymptomatic COVID-19 [Recovered/Resolved]
  - Off label use [Unknown]
  - Escherichia bacteraemia [Recovered/Resolved]
  - Sepsis [Recovered/Resolved]
  - Drug interaction [Recovered/Resolved]
  - Erysipelas [Recovered/Resolved]

NARRATIVE: CASE EVENT DATE: 20200718
